FAERS Safety Report 5893318-7 (Version None)
Quarter: 2008Q3

REPORT INFORMATION
  Report Type: 
  Country: None (occurrence: None)
  Receive Date: 20080922
  Receipt Date: 20080922
  Transmission Date: 20090109
  Serious: Yes (Hospitalization)
  Sender: FDA-Public Use
  Company Number: None

PATIENT
  Sex: Female
  Weight: 86.6 kg

DRUGS (9)
  1. ABILIFY [Suspect]
     Indication: BIPOLAR DISORDER
     Dosage: AS ABOVE
  2. PREVACID [Concomitant]
  3. DILANTIN [Concomitant]
  4. DEPAKOTE [Concomitant]
  5. ASPIRIN [Concomitant]
  6. LISINOPRIL [Concomitant]
  7. METOPROLOL [Concomitant]
  8. CELEXA [Concomitant]
  9. LIPITOR [Concomitant]

REACTIONS (4)
  - ARTERIOSCLEROSIS CORONARY ARTERY [None]
  - DYSPNOEA EXERTIONAL [None]
  - ELECTROLYTE IMBALANCE [None]
  - PAIN IN JAW [None]
